FAERS Safety Report 5382843-3 (Version None)
Quarter: 2007Q3

REPORT INFORMATION
  Report Type: 
  Country: None (occurrence: None)
  Receive Date: 20070710
  Receipt Date: 20070702
  Transmission Date: 20080115
  Serious: Yes (Other)
  Sender: FDA-Public Use
  Company Number: US-AMGEN-STX232321

PATIENT
  Sex: Male

DRUGS (1)
  1. ENBREL [Suspect]
     Indication: PSORIASIS
     Route: 058
     Dates: start: 20070501

REACTIONS (7)
  - AMNESIA [None]
  - ARTHROPOD BITE [None]
  - BIPOLAR I DISORDER [None]
  - BLINDNESS [None]
  - NASOPHARYNGITIS [None]
  - PSORIASIS [None]
  - VOMITING [None]
